FAERS Safety Report 7941555-X (Version None)
Quarter: 2011Q4

REPORT INFORMATION
  Report Type: 
  Country: None (occurrence: None)
  Receive Date: 20111128
  Receipt Date: 20111121
  Transmission Date: 20120403
  Serious: Yes (Other)
  Sender: FDA-Public Use
  Company Number: JP-JNJFOC-20110912041

PATIENT
  Age: 55 Year
  Sex: Female

DRUGS (17)
  1. BUPRENORPHINE HCL [Suspect]
     Indication: PAIN
     Dosage: 1 PER 1 DAY
     Route: 054
     Dates: start: 20110826
  2. ACETAMINOPHEN [Suspect]
     Dosage: 1 PER 1 DAY
     Route: 048
     Dates: end: 20110818
  3. TRAMADOL HYDROCHLORIDE AND ACETAMINOPHEN [Suspect]
     Dosage: 1 PER 1 DAY
     Route: 048
     Dates: start: 20110930, end: 20111006
  4. TRAMADOL HYDROCHLORIDE AND ACETAMINOPHEN [Suspect]
     Dosage: 1 PER 1 DAY
     Route: 048
     Dates: start: 20111007, end: 20111013
  5. BUPRENORPHINE HCL [Suspect]
     Dosage: 1 PER 1 DAY
     Route: 054
     Dates: end: 20110819
  6. TRAMADOL HYDROCHLORIDE AND ACETAMINOPHEN [Suspect]
     Dosage: 1 PER 1 DAY
     Route: 048
     Dates: start: 20111007, end: 20111013
  7. TRAMADOL HYDROCHLORIDE AND ACETAMINOPHEN [Suspect]
     Dosage: 1 PER 1 DAY
     Route: 048
     Dates: start: 20111014
  8. BUPRENORPHINE HCL [Suspect]
     Indication: ARTHRALGIA
     Dosage: 1 PER 1 DAY
     Route: 054
     Dates: end: 20110819
  9. BUPRENORPHINE HCL [Suspect]
     Dosage: 1 PER 1 DAY
     Route: 054
     Dates: start: 20110826
  10. ACETAMINOPHEN [Suspect]
     Indication: PRODUCT USED FOR UNKNOWN INDICATION
     Dosage: 1 PER 1 DAY
     Route: 048
     Dates: start: 20110826
  11. TRAMADOL HYDROCHLORIDE AND ACETAMINOPHEN [Suspect]
     Dosage: 1 DF, 1 PER 1 DAY
     Route: 048
     Dates: start: 20110819, end: 20110825
  12. BUPRENORPHINE HCL [Suspect]
     Dosage: 1 PER 1 DAY
     Route: 054
     Dates: start: 20110819, end: 20110825
  13. TRAMADOL HYDROCHLORIDE AND ACETAMINOPHEN [Suspect]
     Indication: ARTHRALGIA
     Dosage: 1 PER 1 DAY
     Route: 048
     Dates: start: 20111014
  14. TRAMADOL HYDROCHLORIDE AND ACETAMINOPHEN [Suspect]
     Dosage: 1 PER 1 DAY
     Route: 048
     Dates: start: 20110930, end: 20111006
  15. TRAMADOL HYDROCHLORIDE AND ACETAMINOPHEN [Suspect]
     Dosage: 1 DF, 1 PER 1 DAY
     Route: 048
     Dates: start: 20110819, end: 20110825
  16. BUPRENORPHINE HCL [Suspect]
     Dosage: 1 PER 1 DAY
     Route: 054
     Dates: start: 20110819, end: 20110825
  17. BUP-4 [Suspect]
     Indication: POLLAKIURIA
     Route: 048
     Dates: start: 20110809

REACTIONS (2)
  - POLLAKIURIA [None]
  - SOMNOLENCE [None]
